FAERS Safety Report 8163850-4 (Version None)
Quarter: 2012Q1

REPORT INFORMATION
  Report Type: 
  Country: None (occurrence: None)
  Receive Date: 20120224
  Receipt Date: 20120222
  Transmission Date: 20120608
  Serious: Yes (Death, Hospitalization)
  Sender: FDA-Public Use
  Company Number: PHEH2012US003777

PATIENT
  Sex: Female

DRUGS (19)
  1. NORVASC [Concomitant]
  2. METOPROLOL TARTRATE [Concomitant]
  3. ASPIRIN [Concomitant]
  4. SPIRIVA [Concomitant]
  5. PLAVIX [Concomitant]
  6. HYDROCODONE BITARTRATE [Concomitant]
  7. NITROSTAT [Concomitant]
  8. PREDNISONE TAB [Concomitant]
  9. RECLAST [Suspect]
     Dosage: 5 MG, ONCE A YEAR
     Route: 042
     Dates: start: 20110407
  10. CODEINE SULFATE [Concomitant]
  11. AMIODARONE HCL [Concomitant]
  12. CRESTOR [Concomitant]
  13. EFFEXOR XR [Concomitant]
  14. CALCIUM CITRATE [Concomitant]
  15. AZATHIOPRINE [Concomitant]
  16. CALCIUM [Concomitant]
  17. ACETAMINOPHEN [Concomitant]
  18. VITAMIN D [Concomitant]
  19. ACETAMINOPHEN [Concomitant]

REACTIONS (1)
  - POST PROCEDURAL COMPLICATION [None]
